FAERS Safety Report 8108090-X (Version None)
Quarter: 2012Q1

REPORT INFORMATION
  Report Type: 
  Country: None (occurrence: None)
  Receive Date: 20120202
  Receipt Date: 20120127
  Transmission Date: 20120608
  Serious: Yes (Other)
  Sender: FDA-Public Use
  Company Number: US-PFIZER INC-2012024189

PATIENT
  Sex: Male

DRUGS (8)
  1. TEMAZEPAM [Concomitant]
     Dosage: UNK
  2. FLEXERIL [Concomitant]
     Dosage: UNK
  3. SPIRIVA [Concomitant]
     Dosage: UNK
  4. LYRICA [Suspect]
     Dosage: 100 (NO UNITS PROVIDED),  3X/DAY (TID)
  5. ADVAIR DISKUS 100/50 [Concomitant]
     Dosage: UNK
  6. LORAZEPAM [Concomitant]
     Dosage: UNK
  7. CIPROFLOXACIN [Concomitant]
     Dosage: UNK
  8. AMITRIPTYLINE [Concomitant]
     Dosage: UNK

REACTIONS (1)
  - QUADRIPLEGIA [None]
